FAERS Safety Report 25746639 (Version 1)
Quarter: 2025Q3

REPORT INFORMATION
  Report Type: Report from Study
  Country: US (occurrence: US)
  Receive Date: 20250901
  Receipt Date: 20250901
  Transmission Date: 20251021
  Serious: No
  Sender: SUNOVION
  Company Number: US-SUMITOMO PHARMA SWITZERLAND GMBH-2025SPA010892

PATIENT
  Age: 82 Year
  Sex: Male

DRUGS (11)
  1. ORGOVYX [Suspect]
     Active Substance: RELUGOLIX
     Indication: Prostate cancer
     Route: 048
  2. ORGOVYX [Suspect]
     Active Substance: RELUGOLIX
     Route: 048
  3. BUPROPION HYDROCHLORIDE [Concomitant]
     Active Substance: BUPROPION HYDROCHLORIDE
  4. GABAPENTIN [Concomitant]
     Active Substance: GABAPENTIN
  5. LOSARTAN [Concomitant]
     Active Substance: LOSARTAN
  6. XARELTO [Concomitant]
     Active Substance: RIVAROXABAN
  7. ROSUVASTATIN [Concomitant]
     Active Substance: ROSUVASTATIN
  8. RIVASTIGMINE [Concomitant]
     Active Substance: RIVASTIGMINE
  9. TYLENOL [Concomitant]
     Active Substance: ACETAMINOPHEN
  10. MIRABEGRON [Concomitant]
     Active Substance: MIRABEGRON
  11. TYLENOL PM EXTRA STRENGTH [Concomitant]
     Active Substance: ACETAMINOPHEN\DIPHENHYDRAMINE HYDROCHLORIDE

REACTIONS (2)
  - Hot flush [Unknown]
  - Insomnia [Unknown]
